FAERS Safety Report 8520320-9 (Version None)
Quarter: 2012Q3

REPORT INFORMATION
  Report Type: 
  Country: None (occurrence: None)
  Receive Date: 20120719
  Receipt Date: 20120703
  Transmission Date: 20120928
  Serious: No
  Sender: FDA-Public Use
  Company Number: US-TEVA-341516USA

PATIENT
  Sex: Male
  Weight: 122.58 kg

DRUGS (5)
  1. ASPIRIN [Concomitant]
     Dosage: 81 MG OR 325 MG
     Route: 048
  2. NUVIGIL [Suspect]
     Indication: PALPITATIONS
     Dosage: ONE DOSE
     Route: 048
     Dates: start: 20120518
  3. ATORVASTATIN [Concomitant]
     Indication: BLOOD CHOLESTEROL
     Route: 048
  4. ATENOLOL [Concomitant]
     Indication: HYPERTENSION
     Route: 048
  5. IBUPROFEN [Concomitant]
     Indication: BACK PAIN
     Route: 048

REACTIONS (4)
  - DRUG INEFFECTIVE [None]
  - PALPITATIONS [None]
  - HEADACHE [None]
  - HEART RATE INCREASED [None]
